FAERS Safety Report 24845463 (Version 1)
Quarter: 2025Q1

REPORT INFORMATION
  Report Type: Spontaneous
  Country: CA (occurrence: CA)
  Receive Date: 20250115
  Receipt Date: 20250115
  Transmission Date: 20250409
  Serious: Yes (Other)
  Sender: PFIZER
  Company Number: CA-PFIZER INC-202500007470

PATIENT
  Age: 65 Year
  Sex: Female
  Weight: 34 kg

DRUGS (20)
  1. RITUXIMAB [Suspect]
     Active Substance: RITUXIMAB
  2. CIPROFLOXACIN [Suspect]
     Active Substance: CIPROFLOXACIN
  3. HYDROMORPHONE HYDROCHLORIDE [Suspect]
     Active Substance: HYDROMORPHONE HYDROCHLORIDE
  4. ROPIVACAINE HYDROCHLORIDE [Suspect]
     Active Substance: ROPIVACAINE HYDROCHLORIDE
  5. ASPIRIN [Suspect]
     Active Substance: ASPIRIN
     Route: 065
  6. ADVAIR HFA [Suspect]
     Active Substance: FLUTICASONE PROPIONATE\SALMETEROL XINAFOATE
  7. AMLODIPINE BESYLATE [Suspect]
     Active Substance: AMLODIPINE BESYLATE
  8. BECLOMETHASONE [Suspect]
     Active Substance: BECLOMETHASONE
  9. CALCIUM CARBONATE [Suspect]
     Active Substance: CALCIUM CARBONATE
  10. CLONAZEPAM [Suspect]
     Active Substance: CLONAZEPAM
  11. ERGOCALCIFEROL [Suspect]
     Active Substance: ERGOCALCIFEROL
  12. FOLATE SODIUM [Suspect]
     Active Substance: FOLATE SODIUM
  13. MOXIFLOXACIN [Suspect]
     Active Substance: MOXIFLOXACIN
  14. PREDNISONE [Suspect]
     Active Substance: PREDNISONE
  15. RISEDRONATE SODIUM [Suspect]
     Active Substance: RISEDRONATE SODIUM
  16. ROSUVASTATIN [Suspect]
     Active Substance: ROSUVASTATIN
     Route: 048
  17. SINGULAIR [Suspect]
     Active Substance: MONTELUKAST SODIUM
  18. THEOPHYLLINE [Suspect]
     Active Substance: THEOPHYLLINE
  19. TRAMADOL HYDROCHLORIDE [Suspect]
     Active Substance: TRAMADOL HYDROCHLORIDE
  20. XOLAIR [Suspect]
     Active Substance: OMALIZUMAB

REACTIONS (7)
  - Drug hypersensitivity [Not Recovered/Not Resolved]
  - Malaise [Not Recovered/Not Resolved]
  - Oedema [Not Recovered/Not Resolved]
  - Pain [Not Recovered/Not Resolved]
  - Pneumonia [Not Recovered/Not Resolved]
  - Respiratory tract infection [Not Recovered/Not Resolved]
  - Vomiting [Not Recovered/Not Resolved]
